FAERS Safety Report 23063662 (Version 2)
Quarter: 2023Q4

REPORT INFORMATION
  Report Type: Report from Study
  Country: US (occurrence: US)
  Receive Date: 20231013
  Receipt Date: 20231017
  Transmission Date: 20240109
  Serious: No
  Sender: FDA-Public Use
  Company Number: US-002147023-NVSC2023US220296

PATIENT
  Sex: Female

DRUGS (1)
  1. MEKINIST [Suspect]
     Active Substance: TRAMETINIB DIMETHYL SULFOXIDE
     Indication: Non-small cell lung cancer metastatic
     Dosage: UNK
     Route: 065

REACTIONS (2)
  - Diarrhoea [Recovering/Resolving]
  - Off label use [Recovering/Resolving]
